FAERS Safety Report 8791226 (Version 1)
Quarter: 2012Q4

REPORT INFORMATION
  Report Type: Spontaneous
  Country: TR (occurrence: None)
  Receive Date: 20120911
  Receipt Date: 20120911
  Transmission Date: 20130627
  Serious: Yes (Other)
  Sender: FDA-Public Use
  Company Number: FK201202605

PATIENT
  Age: 13 Year
  Sex: Female

DRUGS (4)
  1. METHOTREXATE [Suspect]
     Indication: NON-HODGKIN^S LYMPHOMA STAGE IV
  2. CYTOSINE [Concomitant]
  3. ETOPOSID (ETOPOSIDE) [Concomitant]
  4. LEUCOVORINE(CALCIUM FOLINATE [Concomitant]

REACTIONS (22)
  - Tumour lysis syndrome [None]
  - Pruritus [None]
  - Hyperaemia [None]
  - Neutropenia [None]
  - Mucosal inflammation [None]
  - Fungal oesophagitis [None]
  - Chest pain [None]
  - Dysphagia [None]
  - Intra-abdominal haemorrhage [None]
  - Abdominal distension [None]
  - Pleural haemorrhage [None]
  - Pyrexia [None]
  - Hypotension [None]
  - Tachypnoea [None]
  - Oxygen saturation decreased [None]
  - Toxicity to various agents [None]
  - Blood urea increased [None]
  - Blood creatinine increased [None]
  - Hypokalaemia [None]
  - Pleural effusion [None]
  - Pulmonary oedema [None]
  - Haemoglobin decreased [None]
